FAERS Safety Report 21027954 (Version 1)
Quarter: 2022Q2

REPORT INFORMATION
  Report Type: Spontaneous
  Country: US (occurrence: US)
  Receive Date: 20220630
  Receipt Date: 20220630
  Transmission Date: 20220721
  Serious: No
  Sender: FDA-Public Use
  Company Number: US-PFIZER INC-202200907208

PATIENT
  Age: 58 Year
  Sex: Male

DRUGS (16)
  1. PAXLOVID [Suspect]
     Active Substance: NIRMATRELVIR\RITONAVIR
     Indication: COVID-19 treatment
     Dosage: UNK
     Dates: start: 20220616, end: 20220621
  2. CRESEMBA [Concomitant]
     Active Substance: ISAVUCONAZONIUM SULFATE
     Dosage: UNK
  3. PREVIDENT [Concomitant]
     Active Substance: SODIUM FLUORIDE
     Dosage: UNK (5000 PLUS^S 1.1% CREAM)
  4. CALCIUM\VITAMIN D [Concomitant]
     Active Substance: CALCIUM\VITAMIN D
     Dosage: UNK (500 MG-10 MCG (400 UNIT) PER TABLET)
  5. MEPRON [Concomitant]
     Active Substance: ATOVAQUONE
     Dosage: UNK (750 MG/5 ML SUSPENSION)
  6. LIPITOR [Concomitant]
     Active Substance: ATORVASTATIN CALCIUM
     Dosage: UNK
  7. RAPAMUNE [Concomitant]
     Active Substance: SIROLIMUS
     Dosage: 0.5 MG (TABLET X3)
  8. TRENTAL [Concomitant]
     Active Substance: PENTOXIFYLLINE
     Dosage: UNK (400 MG CR TABLET)
  9. VENCLEXTA [Concomitant]
     Active Substance: VENETOCLAX
     Dosage: UNK
  10. NORVASC [Concomitant]
     Active Substance: AMLODIPINE BESYLATE
     Dosage: UNK
  11. KYTRIL [Concomitant]
     Active Substance: GRANISETRON HYDROCHLORIDE
     Dosage: UNK
  12. COLACE [Concomitant]
     Active Substance: DOCUSATE SODIUM
     Dosage: 100 MG (100 MG TABLET X2)
  13. PROTONIX [Concomitant]
     Active Substance: PANTOPRAZOLE SODIUM
     Dosage: UNK (40 MG EC TABLET)
  14. VALTREX [Concomitant]
     Active Substance: VALACYCLOVIR HYDROCHLORIDE
     Dosage: 500 MG (500 MG TABLET X2)
  15. VITAMIN B12 [Concomitant]
     Active Substance: CYANOCOBALAMIN
     Dosage: UNK
  16. ONE A DAY MEN^S 50 + HEALTHY ADVANTAGE [Concomitant]
     Dosage: UNK (400-20-370 MCG TABLET)

REACTIONS (2)
  - COVID-19 [Recovering/Resolving]
  - Disease recurrence [Recovering/Resolving]

NARRATIVE: CASE EVENT DATE: 20220625
